FAERS Safety Report 6253444-X (Version None)
Quarter: 2009Q3

REPORT INFORMATION
  Report Type: 
  Country: None (occurrence: None)
  Receive Date: 20090626
  Receipt Date: 20090304
  Transmission Date: 20100115
  Serious: Yes (Other)
  Sender: FDA-Public Use
  Company Number: 619194

PATIENT
  Sex: Male

DRUGS (3)
  1. XELODA [Suspect]
     Indication: OESOPHAGEAL CARCINOMA
  2. ELOXATIN [Suspect]
     Indication: OESOPHAGEAL CARCINOMA
     Dosage: INTRAVENOUS
     Route: 042
  3. ACLARUBICIN (ACLARUBICIN) [Concomitant]

REACTIONS (3)
  - ALANINE AMINOTRANSFERASE INCREASED [None]
  - ASPARTATE AMINOTRANSFERASE INCREASED [None]
  - BLOOD BILIRUBIN INCREASED [None]
